FAERS Safety Report 6016129-0 (Version None)
Quarter: 2008Q4

REPORT INFORMATION
  Report Type: 
  Country: None (occurrence: None)
  Receive Date: 20081222
  Receipt Date: 20081215
  Transmission Date: 20090506
  Serious: Yes (Other)
  Sender: FDA-Public Use
  Company Number: JP-ASTRAZENECA-2008AP09045

PATIENT
  Age: 79 Year
  Sex: Female
  Weight: 44 kg

DRUGS (8)
  1. IRESSA [Suspect]
     Indication: LUNG CARCINOMA CELL TYPE UNSPECIFIED RECURRENT
     Route: 048
     Dates: start: 20080929, end: 20081105
  2. CARDENALIN [Concomitant]
     Route: 048
  3. DEPAS [Concomitant]
     Route: 048
  4. NAUZELIN [Concomitant]
     Route: 048
  5. ZYLORIC [Concomitant]
     Route: 048
  6. AMLODIN [Concomitant]
     Route: 048
  7. ONEALFA [Concomitant]
     Route: 048
  8. FLUITRAN [Concomitant]
     Route: 048

REACTIONS (1)
  - HEPATIC FUNCTION ABNORMAL [None]
